FAERS Safety Report 8307606-8 (Version None)
Quarter: 2012Q2

REPORT INFORMATION
  Report Type: 
  Country: None (occurrence: None)
  Receive Date: 20120424
  Receipt Date: 20120417
  Transmission Date: 20120825
  Serious: Yes (Hospitalization, Other)
  Sender: FDA-Public Use
  Company Number: US-PFIZER INC-2012047571

PATIENT
  Sex: Male
  Weight: 95.23 kg

DRUGS (10)
  1. LYRICA [Suspect]
     Dosage: 300 MG, 2X/DAY
  2. SOMA [Concomitant]
     Indication: NERVE INJURY
  3. LYRICA [Suspect]
     Indication: SPINAL COLUMN INJURY
     Dosage: 300 MG, 2X/DAY
     Route: 048
     Dates: end: 20120401
  4. VALIUM [Concomitant]
     Dosage: 10 MG, 3X/DAY
  5. LYRICA [Suspect]
     Indication: SPINAL CORD DISORDER
     Dosage: 450 MG, 2X/DAY
     Route: 048
  6. PERCOCET [Suspect]
     Indication: BREAKTHROUGH PAIN
     Dosage: 10/325 MG, UP TO SIX TIMES A DAY
  7. SOMA [Concomitant]
     Indication: MUSCULOSKELETAL PAIN
     Dosage: 350 MG, 3X/DAY
  8. LISINOPRIL [Concomitant]
     Indication: BLOOD PRESSURE ABNORMAL
     Dosage: 20 MG, DAILY
  9. LYRICA [Suspect]
     Dosage: 150 MG, 2X/DAY
     Dates: start: 20050101
  10. MS CONTIN [Suspect]
     Indication: SPINAL CORD DISORDER
     Dosage: 60 MG, 2X/DAY

REACTIONS (14)
  - CHEST PAIN [None]
  - WITHDRAWAL SYNDROME [None]
  - PAIN [None]
  - RESTLESSNESS [None]
  - ANGER [None]
  - CRYING [None]
  - MOOD SWINGS [None]
  - AGITATION [None]
  - WEIGHT DECREASED [None]
  - TREMOR [None]
  - DECREASED APPETITE [None]
  - INSOMNIA [None]
  - HYPERHIDROSIS [None]
  - BLOOD PRESSURE INCREASED [None]
